FAERS Safety Report 9407070 (Version 2)
Quarter: 2013Q3

REPORT INFORMATION
  Report Type: Spontaneous
  Country: None (occurrence: US)
  Receive Date: 20130718
  Receipt Date: 20130906
  Transmission Date: 20140515
  Serious: Yes (Other)
  Sender: FDA-Public Use
  Company Number: 2013SP001950

PATIENT
  Age: 32 Year
  Sex: Female
  Weight: 77 kg

DRUGS (8)
  1. LATUDA [Suspect]
     Indication: BIPOLAR DISORDER
     Route: 048
     Dates: start: 20130613, end: 20130618
  2. LATUDA [Suspect]
     Indication: EXCORIATION
     Route: 048
     Dates: start: 20130613, end: 20130618
  3. LATUDA [Suspect]
     Indication: BIPOLAR DISORDER
     Route: 048
     Dates: start: 20130521, end: 20130612
  4. LATUDA [Suspect]
     Indication: EXCORIATION
     Route: 048
     Dates: start: 20130521, end: 20130612
  5. PAXIL [Concomitant]
     Indication: DEPRESSION
     Dates: start: 20130613
  6. ALBUTEROL [Concomitant]
     Indication: ASTHMA
  7. QVAR INHALER [Concomitant]
     Indication: ASTHMA
  8. LORATADINE [Concomitant]
     Indication: SEASONAL ALLERGY

REACTIONS (1)
  - Angioedema [Recovered/Resolved]
